FAERS Safety Report 8966566 (Version 2)
Quarter: 2013Q1

REPORT INFORMATION
  Report Type: Report from Study
  Country: BE (occurrence: BE)
  Receive Date: 20121214
  Receipt Date: 20130213
  Transmission Date: 20140127
  Serious: Yes (Life-Threatening)
  Sender: FDA-Public Use
  Company Number: BE-CELGENEUS-013-C5013-12121333

PATIENT
  Age: 71 Year
  Sex: Male

DRUGS (12)
  1. THALIDOMIDE [Suspect]
     Indication: PLASMA CELL MYELOMA
     Dosage: 200 MILLIGRAM
     Route: 065
     Dates: start: 20100420
  2. THALIDOMIDE [Suspect]
     Dosage: 50 MILLIGRAM
     Route: 065
     Dates: end: 20110919
  3. MELPHALAN [Suspect]
     Indication: PLASMA CELL MYELOMA
     Dosage: 20 MILLIGRAM
     Route: 065
     Dates: start: 20100420, end: 20110812
  4. MELPHALAN [Suspect]
     Route: 065
     Dates: end: 201109
  5. PREDNISONE [Suspect]
     Indication: PLASMA CELL MYELOMA
     Dosage: 160 MILLIGRAM
     Route: 065
     Dates: start: 20100420, end: 20110812
  6. PREDNISONE [Suspect]
     Route: 065
     Dates: end: 201109
  7. CARDIOASPIRINE [Concomitant]
     Indication: THROMBOSIS PROPHYLAXIS
     Dosage: 100 MILLIGRAM
     Route: 048
     Dates: start: 20111213
  8. TAMSULOSINE [Concomitant]
     Indication: BENIGN PROSTATIC HYPERPLASIA
     Dosage: .4 MILLIGRAM
     Route: 048
     Dates: start: 2000
  9. SIMVASTATINE [Concomitant]
     Indication: HYPERCHOLESTEROLAEMIA
     Dosage: 20 MILLIGRAM
     Route: 048
     Dates: start: 19410905
  10. URICRAN [Concomitant]
     Indication: BENIGN PROSTATIC HYPERPLASIA
     Dosage: 500 MILLIGRAM
     Route: 048
     Dates: start: 20100420
  11. D-CURE [Concomitant]
     Indication: VITAMIN D DEFICIENCY
     Route: 048
  12. FRAXIPARIN [Concomitant]
     Indication: THROMBOSIS PROPHYLAXIS
     Route: 065
     Dates: start: 20100612

REACTIONS (1)
  - Myelodysplastic syndrome [Not Recovered/Not Resolved]
